FAERS Safety Report 9845852 (Version 1)
Quarter: 2014Q1

REPORT INFORMATION
  Report Type: Spontaneous
  Country: US (occurrence: US)
  Receive Date: 20140127
  Receipt Date: 20140127
  Transmission Date: 20141002
  Serious: No
  Sender: FDA-Public Use
  Company Number: US-PFIZER INC-2014020282

PATIENT
  Age: 51 Year
  Sex: Male

DRUGS (1)
  1. VFEND [Suspect]
     Indication: ASPERGILLUS INFECTION
     Dosage: 200 MG, 2X/DAY
     Dates: start: 20131203

REACTIONS (3)
  - Photophobia [Unknown]
  - Nausea [Unknown]
  - Vomiting [Unknown]
